FAERS Safety Report 7801791-X (Version None)
Quarter: 2011Q4

REPORT INFORMATION
  Report Type: 
  Country: None (occurrence: None)
  Receive Date: 20111007
  Receipt Date: 20111003
  Transmission Date: 20120403
  Serious: Yes (Hospitalization)
  Sender: FDA-Public Use
  Company Number: FR-PFIZER INC-2011235894

PATIENT
  Sex: Male

DRUGS (1)
  1. LYRICA [Suspect]
     Indication: EPILEPSY
     Dosage: 900 MG A DAY

REACTIONS (2)
  - OVERDOSE [None]
  - ABNORMAL BEHAVIOUR [None]
